FAERS Safety Report 12167696 (Version 3)
Quarter: 2017Q3

REPORT INFORMATION
  Report Type: Report from Study
  Country: NL (occurrence: NL)
  Receive Date: 20160310
  Receipt Date: 20170926
  Transmission Date: 20171127
  Serious: Yes (Hospitalization)
  Sender: FDA-Public Use
  Company Number: NL-TEVA-641330ISR

PATIENT
  Age: 62 Year
  Sex: Female

DRUGS (6)
  1. FLUOROURACIL. [Suspect]
     Active Substance: FLUOROURACIL
     Indication: PANCREATIC CARCINOMA
     Dosage: 500 MILLIGRAM DAILY;
     Route: 042
     Dates: start: 20160222
  2. FLUOROURACIL. [Suspect]
     Active Substance: FLUOROURACIL
     Dosage: 2850 MILLIGRAM DAILY;
     Route: 042
     Dates: start: 20160222
  3. IRINOTECAN [Suspect]
     Active Substance: IRINOTECAN
     Indication: PANCREATIC CARCINOMA
     Dosage: 220 MILLIGRAM DAILY;
     Route: 042
     Dates: start: 20160222, end: 20160222
  4. LEUCOVORIN. [Suspect]
     Active Substance: LEUCOVORIN
     Indication: PANCREATIC CARCINOMA
     Dosage: 500 MILLIGRAM DAILY;
     Route: 042
     Dates: start: 20160222
  5. OXALIPLATIN. [Suspect]
     Active Substance: OXALIPLATIN
     Indication: PANCREATIC CARCINOMA
     Dosage: 100 MILLIGRAM DAILY;
     Route: 042
     Dates: start: 20160222
  6. LONQUEX [Suspect]
     Active Substance: LIPEGFILGRASTIM
     Indication: PROPHYLAXIS
     Dosage: 6 MILLIGRAM DAILY;
     Route: 058
     Dates: start: 20160225

REACTIONS (1)
  - Respiratory tract infection [Recovered/Resolved]

NARRATIVE: CASE EVENT DATE: 20160302
